FAERS Safety Report 4809347-8 (Version None)
Quarter: 2005Q4

REPORT INFORMATION
  Report Type: 
  Country: None (occurrence: None)
  Receive Date: 20051021
  Receipt Date: 20030415
  Transmission Date: 20060501
  Serious: No
  Sender: FDA-Public Use
  Company Number: USA030435089

PATIENT
  Age: 52 Year
  Sex: Female
  Weight: 73 kg

DRUGS (4)
  1. ZYPREXA [Suspect]
     Indication: DEPRESSION
     Dosage: 2.3 MG/DAY
     Dates: start: 20030101
  2. WELLBUTRIN [Concomitant]
  3. ZOCOR [Concomitant]
  4. SERZONE [Concomitant]

REACTIONS (1)
  - ANAEMIA [None]
